FAERS Safety Report 15282404 (Version 3)
Quarter: 2018Q3

REPORT INFORMATION
  Report Type: Spontaneous
  Country: CN (occurrence: CN)
  Receive Date: 20180816
  Receipt Date: 20180904
  Transmission Date: 20181010
  Serious: Yes (Hospitalization)
  Sender: FDA-Public Use
  Company Number: CN-ROCHE-2170611

PATIENT
  Sex: Male
  Weight: 60 kg

DRUGS (2)
  1. ACTEMRA [Suspect]
     Active Substance: TOCILIZUMAB
     Indication: PRODUCT USED FOR UNKNOWN INDICATION
     Dosage: DOSE: 80MG/4 ML
     Route: 065
     Dates: start: 2016
  2. IGURATIMOD [Concomitant]
     Active Substance: IGURATIMOD
     Route: 048

REACTIONS (1)
  - Gastric cancer [Unknown]
